FAERS Safety Report 25263342 (Version 2)
Quarter: 2025Q2

REPORT INFORMATION
  Report Type: Spontaneous
  Country: US (occurrence: US)
  Receive Date: 20250502
  Receipt Date: 20250512
  Transmission Date: 20250716
  Serious: Yes (Life-Threatening, Hospitalization)
  Sender: MYLAN
  Company Number: US-MYLANLABS-2025M1037886

PATIENT
  Age: 75 Year
  Sex: Male
  Weight: 68 kg

DRUGS (44)
  1. CARBIDOPA\LEVODOPA [Interacting]
     Active Substance: CARBIDOPA\LEVODOPA
     Indication: Parkinson^s disease
     Dosage: 1 DOSAGE FORM, TID (THREE TIMES A DAY)
  2. CARBIDOPA\LEVODOPA [Interacting]
     Active Substance: CARBIDOPA\LEVODOPA
     Dosage: 1 DOSAGE FORM, TID (THREE TIMES A DAY)
  3. CARBIDOPA\LEVODOPA [Interacting]
     Active Substance: CARBIDOPA\LEVODOPA
     Dosage: 1 DOSAGE FORM, TID (THREE TIMES A DAY)
     Route: 048
  4. CARBIDOPA\LEVODOPA [Interacting]
     Active Substance: CARBIDOPA\LEVODOPA
     Dosage: 1 DOSAGE FORM, TID (THREE TIMES A DAY)
     Route: 048
  5. CARBIDOPA\LEVODOPA [Interacting]
     Active Substance: CARBIDOPA\LEVODOPA
     Dosage: 2 DOSAGE FORM, TID (THREE TIMES A DAY)
  6. CARBIDOPA\LEVODOPA [Interacting]
     Active Substance: CARBIDOPA\LEVODOPA
     Dosage: 2 DOSAGE FORM, TID (THREE TIMES A DAY)
  7. CARBIDOPA\LEVODOPA [Interacting]
     Active Substance: CARBIDOPA\LEVODOPA
     Dosage: 2 DOSAGE FORM, TID (THREE TIMES A DAY)
     Route: 048
  8. CARBIDOPA\LEVODOPA [Interacting]
     Active Substance: CARBIDOPA\LEVODOPA
     Dosage: 2 DOSAGE FORM, TID (THREE TIMES A DAY)
     Route: 048
  9. PANTOPRAZOLE [Interacting]
     Active Substance: PANTOPRAZOLE
     Indication: Stress ulcer
  10. PANTOPRAZOLE [Interacting]
     Active Substance: PANTOPRAZOLE
     Indication: Prophylaxis
     Route: 065
  11. PANTOPRAZOLE [Interacting]
     Active Substance: PANTOPRAZOLE
     Route: 065
  12. PANTOPRAZOLE [Interacting]
     Active Substance: PANTOPRAZOLE
  13. ACETAMINOPHEN [Suspect]
     Active Substance: ACETAMINOPHEN
     Indication: Pyrexia
  14. ACETAMINOPHEN [Suspect]
     Active Substance: ACETAMINOPHEN
     Route: 065
  15. ACETAMINOPHEN [Suspect]
     Active Substance: ACETAMINOPHEN
     Route: 065
  16. ACETAMINOPHEN [Suspect]
     Active Substance: ACETAMINOPHEN
  17. CARBIDOPA\LEVODOPA [Interacting]
     Active Substance: CARBIDOPA\LEVODOPA
     Indication: Parkinson^s disease
  18. CARBIDOPA\LEVODOPA [Interacting]
     Active Substance: CARBIDOPA\LEVODOPA
     Route: 065
  19. CARBIDOPA\LEVODOPA [Interacting]
     Active Substance: CARBIDOPA\LEVODOPA
     Route: 065
  20. CARBIDOPA\LEVODOPA [Interacting]
     Active Substance: CARBIDOPA\LEVODOPA
  21. HYDROMORPHONE [Suspect]
     Active Substance: HYDROMORPHONE
     Indication: Pain
  22. HYDROMORPHONE [Suspect]
     Active Substance: HYDROMORPHONE
     Route: 065
  23. HYDROMORPHONE [Suspect]
     Active Substance: HYDROMORPHONE
     Route: 065
  24. HYDROMORPHONE [Suspect]
     Active Substance: HYDROMORPHONE
  25. AMINO ACIDS [Suspect]
     Active Substance: AMINO ACIDS
     Indication: Nutritional supplementation
     Route: 065
  26. AMINO ACIDS [Suspect]
     Active Substance: AMINO ACIDS
  27. AMINO ACIDS [Suspect]
     Active Substance: AMINO ACIDS
  28. AMINO ACIDS [Suspect]
     Active Substance: AMINO ACIDS
     Route: 065
  29. AMINO ACIDS [Suspect]
     Active Substance: AMINO ACIDS
     Route: 065
  30. AMINO ACIDS [Suspect]
     Active Substance: AMINO ACIDS
  31. AMINO ACIDS [Suspect]
     Active Substance: AMINO ACIDS
  32. AMINO ACIDS [Suspect]
     Active Substance: AMINO ACIDS
     Route: 065
  33. AMINO ACIDS [Suspect]
     Active Substance: AMINO ACIDS
  34. AMINO ACIDS [Suspect]
     Active Substance: AMINO ACIDS
  35. AMINO ACIDS [Suspect]
     Active Substance: AMINO ACIDS
     Route: 065
  36. AMINO ACIDS [Suspect]
     Active Substance: AMINO ACIDS
     Route: 065
  37. AMINO ACIDS [Suspect]
     Active Substance: AMINO ACIDS
  38. AMINO ACIDS [Suspect]
     Active Substance: AMINO ACIDS
  39. AMINO ACIDS [Suspect]
     Active Substance: AMINO ACIDS
     Route: 065
  40. AMINO ACIDS [Suspect]
     Active Substance: AMINO ACIDS
     Route: 065
  41. AMINO ACIDS [Suspect]
     Active Substance: AMINO ACIDS
     Indication: Nutritional supplementation
  42. AMINO ACIDS [Suspect]
     Active Substance: AMINO ACIDS
     Route: 042
  43. AMINO ACIDS [Suspect]
     Active Substance: AMINO ACIDS
     Route: 042
  44. AMINO ACIDS [Suspect]
     Active Substance: AMINO ACIDS

REACTIONS (6)
  - Drug interaction [Unknown]
  - Parkinsonism hyperpyrexia syndrome [Recovering/Resolving]
  - Rebound effect [Unknown]
  - Drug ineffective [Unknown]
  - Muscle rigidity [Recovered/Resolved]
  - Product dose omission issue [Unknown]
